FAERS Safety Report 22012738 (Version 3)
Quarter: 2023Q2

REPORT INFORMATION
  Report Type: Spontaneous
  Country: US (occurrence: US)
  Receive Date: 20230220
  Receipt Date: 20230426
  Transmission Date: 20230722
  Serious: Yes (Other)
  Sender: FDA-Public Use
  Company Number: US-BRISTOL-MYERS SQUIBB COMPANY-2023-024502

PATIENT
  Age: 72 Year
  Sex: Female

DRUGS (1)
  1. REVLIMID [Suspect]
     Active Substance: LENALIDOMIDE
     Indication: Product used for unknown indication
     Dosage: FREQUENCY: 25 MG DAILY FOR 21 DAYS AND 7 DAYS OFF
     Route: 048

REACTIONS (3)
  - Constipation [Not Recovered/Not Resolved]
  - Neutropenia [Unknown]
  - Blood iron increased [Unknown]

NARRATIVE: CASE EVENT DATE: 20230417
